FAERS Safety Report 5456858-0 (Version None)
Quarter: 2007Q3

REPORT INFORMATION
  Report Type: 
  Country: None (occurrence: None)
  Receive Date: 20070918
  Receipt Date: 20070228
  Transmission Date: 20080115
  Serious: Yes (Hospitalization)
  Sender: FDA-Public Use
  Company Number: US-ASTRAZENECA-2006UW26730

PATIENT
  Sex: Female
  Weight: 82.7 kg

DRUGS (3)
  1. SEROQUEL [Suspect]
     Indication: DEPRESSION
     Route: 048
     Dates: start: 20050415
  2. RISPERDAL [Suspect]
  3. GEODON [Concomitant]

REACTIONS (2)
  - DEPRESSION [None]
  - DIABETES MELLITUS [None]
